FAERS Safety Report 8556611-5 (Version None)
Quarter: 2012Q3

REPORT INFORMATION
  Report Type: 
  Country: None (occurrence: None)
  Receive Date: 20120801
  Receipt Date: 20120724
  Transmission Date: 20120928
  Serious: Yes (Other)
  Sender: FDA-Public Use
  Company Number: AR-BRISTOL-MYERS SQUIBB COMPANY-16763807

PATIENT
  Age: 52 Year
  Sex: Female

DRUGS (1)
  1. YERVOY [Suspect]
     Indication: MALIGNANT MELANOMA
     Dates: start: 20120710

REACTIONS (6)
  - INFLUENZA [None]
  - FATIGUE [None]
  - SOMNOLENCE [None]
  - DIARRHOEA [None]
  - HEPATIC NEOPLASM [None]
  - VOMITING [None]
